FAERS Safety Report 18447339 (Version 1)
Quarter: 2020Q4

REPORT INFORMATION
  Report Type: Report from Study
  Country: GB (occurrence: GB)
  Receive Date: 20201030
  Receipt Date: 20201030
  Transmission Date: 20210114
  Serious: Yes (Hospitalization)
  Sender: FDA-Public Use
  Company Number: GB-TAKEDA-2020TUS044129

PATIENT
  Sex: Male

DRUGS (1)
  1. IXAZOMIB [Suspect]
     Active Substance: IXAZOMIB
     Indication: PLASMA CELL MYELOMA
     Dosage: 4 MILLIGRAM
     Route: 048
     Dates: start: 20180314, end: 20200826

REACTIONS (6)
  - Malaise [Unknown]
  - Infection [Unknown]
  - Anxiety [Unknown]
  - Decreased appetite [Unknown]
  - Back pain [Unknown]
  - Anaemia [Unknown]
